FAERS Safety Report 13189628 (Version 1)
Quarter: 2017Q1

REPORT INFORMATION
  Report Type: Spontaneous
  Country: US (occurrence: US)
  Receive Date: 20170206
  Receipt Date: 20170206
  Transmission Date: 20170428
  Serious: Yes (Other)
  Sender: FDA-Public Use
  Company Number: US-AMGEN-USASP2017016710

PATIENT
  Age: 42 Year
  Sex: Female

DRUGS (2)
  1. ENBREL [Suspect]
     Active Substance: ETANERCEPT
     Indication: RHEUMATOID ARTHRITIS
     Dosage: 50 MG, QWK
     Route: 058
     Dates: end: 2016
  2. ENBREL [Suspect]
     Active Substance: ETANERCEPT
     Dosage: 50 MG, QWK
     Route: 058
     Dates: start: 2016

REACTIONS (8)
  - Sunburn [Unknown]
  - Rheumatoid arthritis [Unknown]
  - Injection site scar [Unknown]
  - Injection site bruising [Recovered/Resolved]
  - Injection site pain [Unknown]
  - Injection site extravasation [Unknown]
  - Underdose [Unknown]
  - Pain [Unknown]

NARRATIVE: CASE EVENT DATE: 2016
